FAERS Safety Report 21961928 (Version 4)
Quarter: 2023Q1

REPORT INFORMATION
  Report Type: Spontaneous
  Country: FR (occurrence: FR)
  Receive Date: 20230207
  Receipt Date: 20230316
  Transmission Date: 20230417
  Serious: Yes (Other)
  Sender: FDA-Public Use
  Company Number: FR-GLAXOSMITHKLINE-FR2022EME187177

PATIENT

DRUGS (2)
  1. NIRAPARIB [Suspect]
     Active Substance: NIRAPARIB
     Indication: Pinealoblastoma
     Dosage: 100 MG, QD
  2. IRINOTECAN [Suspect]
     Active Substance: IRINOTECAN
     Indication: Product used for unknown indication
     Dosage: UNK

REACTIONS (9)
  - Hemiparesis [Unknown]
  - Malignant neoplasm progression [Unknown]
  - Meningeal disorder [Unknown]
  - Headache [Unknown]
  - Vomiting [Recovering/Resolving]
  - Neutrophil count decreased [Unknown]
  - Fatigue [Unknown]
  - Product prescribing issue [Unknown]
  - Off label use [Unknown]
